FAERS Safety Report 4311142-3 (Version None)
Quarter: 2004Q1

REPORT INFORMATION
  Report Type: 
  Country: None (occurrence: None)
  Receive Date: 20040302
  Receipt Date: 20040218
  Transmission Date: 20041129
  Serious: Yes (Hospitalization, Other)
  Sender: FDA-Public Use
  Company Number: FR-JNJFOC-20030901124

PATIENT
  Age: 29 Year
  Sex: Male

DRUGS (6)
  1. RISPERDAL [Suspect]
     Indication: MENTAL DISORDER
     Dosage: 4 MG, IN 1 DAY, ORAL; 10 MG, IN 1 DAY, ORAL
     Route: 048
     Dates: end: 20030531
  2. RISPERDAL [Suspect]
     Indication: MENTAL DISORDER
     Dosage: 4 MG, IN 1 DAY, ORAL; 10 MG, IN 1 DAY, ORAL
     Route: 048
     Dates: start: 20030428
  3. HALDOL [Suspect]
     Indication: MENTAL DISORDER
     Dosage: 20 MG, IN 1 DAY, ORAL
     Route: 048
     Dates: start: 20030425, end: 20030505
  4. CHLORPROMAZINE [Suspect]
     Indication: MENTAL DISORDER
     Dosage: 200 MG, IN 1 DAY, ORAL
     Route: 048
     Dates: start: 20030425, end: 20030521
  5. ATHYMIL (MIANSERIN HYDROCHLORIDE) [Suspect]
     Indication: MENTAL DISORDER
     Dosage: 30 MG, IN 1 DAY, ORAL
     Route: 048
     Dates: start: 20030505, end: 20030523
  6. LORAZEPAM [Suspect]
     Indication: MENTAL DISORDER
     Dosage: 5 MG, IN 1 DAY, ORAL
     Route: 048
     Dates: start: 20030425, end: 20030603

REACTIONS (7)
  - CHOLESTASIS [None]
  - CHRONIC HEPATITIS [None]
  - CYTOLYTIC HEPATITIS [None]
  - DRUG INTERACTION [None]
  - HEPATIC FIBROSIS [None]
  - HEPATITIS GRANULOMATOUS [None]
  - PORTAL HYPERTENSION [None]
